FAERS Safety Report 10227491 (Version 2)
Quarter: 2014Q2

REPORT INFORMATION
  Report Type: Spontaneous
  Country: CO (occurrence: CO)
  Receive Date: 20140610
  Receipt Date: 20140623
  Transmission Date: 20141212
  Serious: Yes (Other)
  Sender: FDA-Public Use
  Company Number: PHHY2014CO069992

PATIENT
  Age: 57 Year
  Sex: Male

DRUGS (6)
  1. TEGRETOL [Suspect]
     Indication: NERVOUS SYSTEM DISORDER
     Dosage: 220 MG, THREE DAILY
     Route: 048
  2. TEGRETOL [Suspect]
     Indication: MENTAL DISORDER
     Dosage: 3 DF (200 MG), DAILY
     Route: 048
     Dates: end: 201403
  3. LOSARTAN [Concomitant]
     Dosage: UNK UKN, UNK
  4. EPAMIN [Concomitant]
     Dosage: UNK UKN, UNK
  5. CLOBAZAM [Concomitant]
     Dosage: UNK UKN, UNK
  6. VALPROIC ACID [Concomitant]
     Dosage: UNK UKN, UNK

REACTIONS (5)
  - Convulsion [Unknown]
  - Hallucination [Unknown]
  - General physical health deterioration [Unknown]
  - Motor dysfunction [Unknown]
  - Coordination abnormal [Unknown]
